FAERS Safety Report 9048048 (Version 1)
Quarter: 2013Q1

REPORT INFORMATION
  Report Type: Spontaneous
  Country: US (occurrence: US)
  Receive Date: 20130204
  Receipt Date: 20130204
  Transmission Date: 20140127
  Serious: No
  Sender: FDA-Public Use
  Company Number: US-AMGEN-USASP2013005936

PATIENT
  Age: 65 Year
  Sex: Female

DRUGS (2)
  1. ENBREL [Suspect]
     Indication: RHEUMATOID ARTHRITIS
     Dosage: 50 MG, WEEKLY
     Dates: start: 20121228
  2. METHOTREXATE [Concomitant]
     Dosage: 15 MG, ONCE A WEEKLY
     Route: 048

REACTIONS (2)
  - Respiratory disorder [Recovered/Resolved]
  - Nasopharyngitis [Recovered/Resolved]
